FAERS Safety Report 9928695 (Version 1)
Quarter: 2014Q1

REPORT INFORMATION
  Report Type: Spontaneous
  Country: GB (occurrence: None)
  Receive Date: 20140224
  Receipt Date: 20140224
  Transmission Date: 20141002
  Serious: Yes (Death, Life-Threatening)
  Sender: FDA-Public Use
  Company Number: FK201400558

PATIENT
  Sex: Male

DRUGS (1)
  1. DOXYCYCLINE FOR INJECTION (MANUFACTURER UNKNOWN) (DOXYCYCLINE HYCLATE) (DOXYCYCLINE HYCLATE) [Suspect]
     Indication: ACNE
     Dosage: 50 MG, 1 IN 1 D, UNKNOWN
     Dates: end: 2011

REACTIONS (6)
  - Suicidal ideation [None]
  - Completed suicide [None]
  - Medication error [None]
  - Malaise [None]
  - Depression [None]
  - Asphyxia [None]
